FAERS Safety Report 8113910-9 (Version None)
Quarter: 2012Q1

REPORT INFORMATION
  Report Type: 
  Country: None (occurrence: None)
  Receive Date: 20120203
  Receipt Date: 20120125
  Transmission Date: 20120608
  Serious: Yes (Hospitalization, Other)
  Sender: FDA-Public Use
  Company Number: FR-ROCHE-1014939

PATIENT
  Age: 61 Year
  Sex: Male
  Weight: 71 kg

DRUGS (3)
  1. MABTHERA [Suspect]
     Indication: NON-HODGKIN'S LYMPHOMA
     Dosage: SECOND LINE OF TREATMENT
     Route: 042
     Dates: start: 20030630, end: 20030721
  2. MABTHERA [Suspect]
     Dosage: THIRD LINE OF TREATMENT
     Route: 042
     Dates: start: 20050722, end: 20070622
  3. MABTHERA [Suspect]
     Indication: LYMPHOMA
     Dosage: FIRST LINE OF TREATMENT
     Route: 042
     Dates: start: 20020111, end: 20070622

REACTIONS (2)
  - CARDIAC FAILURE [None]
  - ISCHAEMIC STROKE [None]
